FAERS Safety Report 5127007-3 (Version None)
Quarter: 2006Q4

REPORT INFORMATION
  Report Type: 
  Country: None (occurrence: None)
  Receive Date: 20061013
  Receipt Date: 20060814
  Transmission Date: 20070319
  Serious: Yes (Hospitalization)
  Sender: FDA-Public Use
  Company Number: GB-GLAXOSMITHKLINE-B0434083A

PATIENT
  Age: 29 Year
  Sex: Female
  Weight: 98 kg

DRUGS (5)
  1. SERETIDE [Suspect]
     Indication: DRUG USE FOR UNKNOWN INDICATION
     Route: 055
     Dates: start: 20060725
  2. OXYCONTIN [Concomitant]
     Dosage: 40MG TWICE PER DAY
     Route: 048
  3. SALBUTAMOL [Concomitant]
     Dosage: 2PUFF FOUR TIMES PER DAY
     Route: 055
  4. TRANEXAMIC ACID [Concomitant]
     Dosage: 1G TWICE PER DAY
     Route: 048
  5. OXYNORM [Concomitant]
     Dosage: 10UG PER DAY
     Route: 048

REACTIONS (3)
  - DIZZINESS [None]
  - HYPERTENSION [None]
  - MUSCULAR WEAKNESS [None]
